FAERS Safety Report 12536664 (Version 1)
Quarter: 2016Q3

REPORT INFORMATION
  Report Type: Spontaneous
  Country: US (occurrence: US)
  Receive Date: 20160707
  Receipt Date: 20160707
  Transmission Date: 20161109
  Serious: Yes (Other)
  Sender: FDA-Public Use
  Company Number: US-PFIZER INC-2016328058

PATIENT
  Sex: Female
  Weight: 72 kg

DRUGS (1)
  1. ADVIL [Suspect]
     Active Substance: IBUPROFEN
     Indication: SPINAL COLUMN STENOSIS
     Dosage: 2400 MG, DAILY;  4 ADVIL LIQUIGELS; 3 TIME A DAY; ORALLY
     Route: 048
     Dates: end: 20160629

REACTIONS (11)
  - Coeliac disease [Not Recovered/Not Resolved]
  - Gastrointestinal disorder [Unknown]
  - Rash [Not Recovered/Not Resolved]
  - Oral disorder [Unknown]
  - Reaction to drug excipients [Unknown]
  - Overdose [Unknown]
  - Urticaria [Not Recovered/Not Resolved]
  - Product use issue [Unknown]
  - Tooth disorder [Unknown]
  - Erythema [Not Recovered/Not Resolved]
  - Stomatitis [Unknown]

NARRATIVE: CASE EVENT DATE: 201603
